FAERS Safety Report 5802332-9 (Version None)
Quarter: 2008Q3

REPORT INFORMATION
  Report Type: 
  Country: None (occurrence: None)
  Receive Date: 20080707
  Receipt Date: 20080616
  Transmission Date: 20090109
  Serious: No
  Sender: FDA-Public Use
  Company Number: US-BOEHRINGER INGELHEIM GMBH, GERMANY-2008-BP-09332BP

PATIENT
  Age: 82 Year
  Sex: Male

DRUGS (7)
  1. ZANTAC 150 [Suspect]
     Indication: DYSPEPSIA
     Route: 048
     Dates: start: 20080609, end: 20080609
  2. EXCEDRIN (MIGRAINE) [Concomitant]
     Indication: ARTHRITIS
  3. ACTOS [Concomitant]
     Indication: DIABETES MELLITUS
  4. COREG [Concomitant]
  5. FOLIC ACID [Concomitant]
  6. CARDURA [Concomitant]
  7. ZANTAC CM [Concomitant]
     Indication: DYSPEPSIA
     Route: 048

REACTIONS (2)
  - ABDOMINAL PAIN UPPER [None]
  - HEADACHE [None]
